FAERS Safety Report 17492822 (Version 5)
Quarter: 2020Q3

REPORT INFORMATION
  Report Type: Spontaneous
  Country: US (occurrence: US)
  Receive Date: 20200303
  Receipt Date: 20200702
  Transmission Date: 20201102
  Serious: Yes (Disabling, Other)
  Sender: FDA-Public Use
  Company Number: NVSC2020US055058

PATIENT
  Age: 83 Year
  Sex: Female
  Weight: 57.14 kg

DRUGS (12)
  1. FENTANYL. [Concomitant]
     Active Substance: FENTANYL
     Indication: PRODUCT USED FOR UNKNOWN INDICATION
     Dosage: 1 DF, Q72H (25/72 MCG/HR)
     Route: 065
  2. EYLEA [Concomitant]
     Active Substance: AFLIBERCEPT
     Indication: PRODUCT USED FOR UNKNOWN INDICATION
     Dosage: UNK
     Route: 065
     Dates: start: 20191031
  3. ATENOLOL. [Concomitant]
     Active Substance: ATENOLOL
     Indication: PRODUCT USED FOR UNKNOWN INDICATION
     Dosage: UNK
     Route: 048
  4. HYDROCHLOROTHIAZIDE. [Concomitant]
     Active Substance: HYDROCHLOROTHIAZIDE
     Indication: PRODUCT USED FOR UNKNOWN INDICATION
     Dosage: 1 DF, QD
     Route: 048
  5. LEXAPRO [Concomitant]
     Active Substance: ESCITALOPRAM OXALATE
     Indication: PRODUCT USED FOR UNKNOWN INDICATION
     Dosage: 1 DF, QD
     Route: 048
  6. LISINOPRIL. [Concomitant]
     Active Substance: LISINOPRIL
     Indication: PRODUCT USED FOR UNKNOWN INDICATION
     Dosage: 1 DF, QD
     Route: 048
  7. METFORMIN [Concomitant]
     Active Substance: METFORMIN HYDROCHLORIDE
     Indication: PRODUCT USED FOR UNKNOWN INDICATION
     Dosage: 1 DF, BID
     Route: 048
  8. TYLENOL [Concomitant]
     Active Substance: ACETAMINOPHEN
     Indication: ARTHRALGIA
     Dosage: 1 DF, QD
     Route: 048
  9. AVASTIN [Concomitant]
     Active Substance: BEVACIZUMAB
     Indication: PRODUCT USED FOR UNKNOWN INDICATION
     Dosage: UNK
     Route: 065
     Dates: start: 20190404
  10. BEOVU [Suspect]
     Active Substance: BROLUCIZUMAB-DBLL
     Indication: PTERYGIUM
     Dosage: 6 MG, QD
     Route: 031
     Dates: start: 20191205
  11. ALLOPURINOL. [Concomitant]
     Active Substance: ALLOPURINOL
     Indication: PRODUCT USED FOR UNKNOWN INDICATION
     Dosage: UNK
     Route: 048
  12. EYLEA [Concomitant]
     Active Substance: AFLIBERCEPT
     Dosage: UNK
     Route: 065
     Dates: start: 20200109

REACTIONS (19)
  - Retinal haemorrhage [Recovering/Resolving]
  - Retinal disorder [Unknown]
  - Corneal oedema [Unknown]
  - Eye pain [Unknown]
  - Necrotising retinitis [Recovered/Resolved with Sequelae]
  - Eye irritation [Unknown]
  - Retinitis [Recovering/Resolving]
  - Haemorrhagic vasculitis [Unknown]
  - Retinal vasculitis [Recovered/Resolved with Sequelae]
  - Visual acuity reduced [Recovering/Resolving]
  - Foreign body sensation in eyes [Unknown]
  - Necrotising retinitis [Unknown]
  - Retinal vasculitis [Recovering/Resolving]
  - Vision blurred [Unknown]
  - Headache [Unknown]
  - Drug ineffective [Recovering/Resolving]
  - Blindness [Recovering/Resolving]
  - Conjunctival scar [Recovering/Resolving]
  - Ocular hyperaemia [Unknown]

NARRATIVE: CASE EVENT DATE: 20191226
